FAERS Safety Report 14689548 (Version 1)
Quarter: 2018Q1

REPORT INFORMATION
  Report Type: Spontaneous
  Country: US (occurrence: US)
  Receive Date: 20180327
  Receipt Date: 20180327
  Transmission Date: 20180509
  Serious: Yes (Other)
  Sender: FDA-Public Use
  Company Number: None

PATIENT
  Age: 37 Year
  Sex: Female
  Weight: 108.9 kg

DRUGS (15)
  1. AMATRIPTALINE [Concomitant]
  2. PROMETHAZINE [Concomitant]
     Active Substance: PROMETHAZINE\PROMETHAZINE HYDROCHLORIDE
  3. OXYCONTIN [Concomitant]
     Active Substance: OXYCODONE HYDROCHLORIDE
  4. ZYRTEC [Concomitant]
     Active Substance: CETIRIZINE HYDROCHLORIDE
  5. KETONE [Concomitant]
  6. BENADRYL [Concomitant]
     Active Substance: DIPHENHYDRAMINE HYDROCHLORIDE
  7. LISINOPRIL. [Concomitant]
     Active Substance: LISINOPRIL
  8. WARFARIN [Concomitant]
     Active Substance: WARFARIN
  9. DIAZEPAM. [Concomitant]
     Active Substance: DIAZEPAM
  10. TRAMADOL. [Concomitant]
     Active Substance: TRAMADOL
  11. VITAMIN D [Concomitant]
     Active Substance: CHOLECALCIFEROL
  12. CORALITE PAIN RELIEF [Suspect]
     Active Substance: CAPSAICIN\MENTHOL
     Indication: BACK PAIN
     Dosage: ?          QUANTITY:1 PATCH(ES);?
     Route: 062
  13. SUMATRIPTAN. [Concomitant]
     Active Substance: SUMATRIPTAN
  14. IRON [Concomitant]
     Active Substance: IRON
  15. RASPBERRY. [Concomitant]
     Active Substance: RASPBERRY

REACTIONS (1)
  - Scar [None]
